FAERS Safety Report 5035266-0 (Version None)
Quarter: 2006Q2

REPORT INFORMATION
  Report Type: 
  Country: None (occurrence: None)
  Receive Date: 20060627
  Receipt Date: 20060516
  Transmission Date: 20061013
  Serious: Yes (Hospitalization)
  Sender: FDA-Public Use
  Company Number: US-ROCHE-448415

PATIENT
  Age: 47 Year
  Sex: Female

DRUGS (10)
  1. PEGASYS [Suspect]
     Dosage: ROUTE REPORTED AS INJECTABLE.
     Route: 050
     Dates: start: 20051201, end: 20060517
  2. COPEGUS [Suspect]
     Dosage: AM AND PM.
     Route: 048
     Dates: start: 20051201, end: 20060517
  3. EFFEXOR [Concomitant]
     Indication: DEPRESSION
  4. PAXIL [Concomitant]
     Indication: DEPRESSION
  5. REMERON [Concomitant]
     Indication: DEPRESSION
  6. OXAZEPAM [Concomitant]
     Indication: DEPRESSION
  7. LASIX [Concomitant]
     Indication: ASCITES
     Dosage: DAILY DOSE WAS INCREASED FROM 100 MG TO 200 MG.
  8. ZOFRAN [Concomitant]
     Indication: VOMITING
     Dates: start: 20040615
  9. NITROGLYCERIN [Concomitant]
     Indication: CHEST PAIN
     Dates: start: 20060520
  10. ASPIRIN [Concomitant]
     Indication: CHEST PAIN
     Dates: start: 20060520

REACTIONS (14)
  - ARTHRALGIA [None]
  - ASCITES [None]
  - BLOOD PRESSURE INCREASED [None]
  - BLOOD PRESSURE SYSTOLIC INCREASED [None]
  - CHEST PAIN [None]
  - CONFUSIONAL STATE [None]
  - DEPRESSION [None]
  - HEART RATE INCREASED [None]
  - HYPOTHYROIDISM [None]
  - MYALGIA [None]
  - ORAL DISCOMFORT [None]
  - SUICIDAL IDEATION [None]
  - VISION BLURRED [None]
  - WEIGHT INCREASED [None]
